FAERS Safety Report 13363910 (Version 3)
Quarter: 2024Q3

REPORT INFORMATION
  Report Type: Spontaneous
  Country: US (occurrence: US)
  Receive Date: 20170323
  Receipt Date: 20240819
  Transmission Date: 20241016
  Serious: Yes (Life-Threatening, Hospitalization, Other)
  Sender: PFIZER
  Company Number: US-MLMSERVICE-20170314-0645818-1

PATIENT
  Age: 16 Year
  Sex: Male

DRUGS (2)
  1. SULFASALAZINE [Interacting]
     Active Substance: SULFASALAZINE
     Indication: Colitis ulcerative
     Dosage: UNK
  2. AMOXICILLIN [Interacting]
     Active Substance: AMOXICILLIN
     Indication: Pharyngitis streptococcal
     Dosage: UNK

REACTIONS (4)
  - Drug interaction [Recovering/Resolving]
  - Drug reaction with eosinophilia and systemic symptoms [Recovering/Resolving]
  - Liver injury [Recovering/Resolving]
  - Hyponatraemia [Recovering/Resolving]
